FAERS Safety Report 18195022 (Version 5)
Quarter: 2020Q3

REPORT INFORMATION
  Report Type: Spontaneous
  Country: TR (occurrence: TR)
  Receive Date: 20200826
  Receipt Date: 20200924
  Transmission Date: 20201103
  Serious: Yes (Hospitalization, Other)
  Sender: FDA-Public Use
  Company Number: TR-VISTAPHARM, INC.-VER202008-001435

PATIENT
  Age: 66 Year
  Sex: Female

DRUGS (1)
  1. DIGOXIN. [Suspect]
     Active Substance: DIGOXIN
     Indication: PRODUCT USED FOR UNKNOWN INDICATION
     Dosage: UNKNOWN

REACTIONS (5)
  - Acute kidney injury [Unknown]
  - Toxicity to various agents [Unknown]
  - Hypervolaemia [Unknown]
  - Hyperkalaemia [Unknown]
  - Cardiovascular disorder [Unknown]
